FAERS Safety Report 12078148 (Version 2)
Quarter: 2016Q2

REPORT INFORMATION
  Report Type: Spontaneous
  Country: KR (occurrence: KR)
  Receive Date: 20160215
  Receipt Date: 20160413
  Transmission Date: 20160815
  Serious: Yes (Other)
  Sender: FDA-Public Use
  Company Number: KR-MUNDIPHARMA DS AND PHARMACOVIGILANCE-GBR-2016-0033904

PATIENT
  Age: 48 Year
  Sex: Male

DRUGS (1)
  1. NORSPAN [Suspect]
     Active Substance: BUPRENORPHINE
     Indication: PAIN
     Dosage: 20 MCG, Q1H
     Route: 062
     Dates: start: 20160202, end: 20160204

REACTIONS (5)
  - Intentional product misuse [Recovered/Resolved]
  - Dizziness [Not Recovered/Not Resolved]
  - Overdose [Recovered/Resolved]
  - Dysuria [Not Recovered/Not Resolved]
  - Somnolence [Not Recovered/Not Resolved]

NARRATIVE: CASE EVENT DATE: 20160202
